FAERS Safety Report 24799220 (Version 2)
Quarter: 2025Q1

REPORT INFORMATION
  Report Type: Spontaneous
  Country: US (occurrence: US)
  Receive Date: 20250102
  Receipt Date: 20250121
  Transmission Date: 20250408
  Serious: Yes (Hospitalization)
  Sender: JOHNSON AND JOHNSON
  Company Number: US-JNJFOC-20241258608

PATIENT
  Age: 32 Year
  Sex: Male

DRUGS (6)
  1. TREMFYA [Suspect]
     Active Substance: GUSELKUMAB
     Indication: Psoriasis
     Dates: start: 20240529
  2. LISINOPRIL [Concomitant]
     Active Substance: LISINOPRIL
     Indication: Hypertension
  3. TRIAMCINOLONE [Concomitant]
     Active Substance: TRIAMCINOLONE
  4. HYDROCORTISONE [Concomitant]
     Active Substance: HYDROCORTISONE
  5. CLONAZEPAM [Concomitant]
     Active Substance: CLONAZEPAM
  6. METHOCARBAMOL AL [Concomitant]

REACTIONS (2)
  - Abdominal infection [Unknown]
  - Colon injury [Recovering/Resolving]

NARRATIVE: CASE EVENT DATE: 20241201
